FAERS Safety Report 12250708 (Version 1)
Quarter: 2016Q2

REPORT INFORMATION
  Report Type: Spontaneous
  Country: US (occurrence: US)
  Receive Date: 20160410
  Receipt Date: 20160410
  Transmission Date: 20160815
  Serious: Yes (Life-Threatening, Hospitalization)
  Sender: FDA-Public Use
  Company Number: US-TEVA-650059USA

PATIENT
  Age: 33 Year
  Sex: Female
  Weight: 70 kg

DRUGS (1)
  1. FLECAINIDE [Suspect]
     Active Substance: FLECAINIDE
     Indication: INTENTIONAL OVERDOSE
     Route: 048

REACTIONS (4)
  - Ventricular tachycardia [Recovering/Resolving]
  - Toxicity to various agents [Recovering/Resolving]
  - Intentional overdose [Recovering/Resolving]
  - Cardiac arrest [Recovering/Resolving]
